FAERS Safety Report 23938490 (Version 2)
Quarter: 2024Q2

REPORT INFORMATION
  Report Type: Spontaneous
  Country: GB (occurrence: GB)
  Receive Date: 20240604
  Receipt Date: 20240626
  Transmission Date: 20240716
  Serious: Yes (Other)
  Sender: FDA-Public Use
  Company Number: GB-MHRA-EMIS-4050-1afc730f-34b8-4d5b-9969-3d428d3b82e5

PATIENT
  Age: 61 Year
  Sex: Male
  Weight: 108 kg

DRUGS (7)
  1. CLINDAMYCIN [Suspect]
     Active Substance: CLINDAMYCIN
     Indication: Product used for unknown indication
     Dosage: TWO TO BE TAKEN FOUR TIMES A DAY
     Route: 065
     Dates: start: 20240528, end: 20240529
  2. AMITRIPTYLINE [Concomitant]
     Active Substance: AMITRIPTYLINE
     Indication: Pain
     Dosage: ONE TO BE TAKEN AT NIGHT - FOR PAIN. CAN INCREASE TO 2 TABLETS AT NIGHT AFTER 1-2 WEEKS IF NEEDED.
     Route: 065
     Dates: start: 20240308
  3. CLINDAMYCIN [Concomitant]
     Active Substance: CLINDAMYCIN
     Indication: Product used for unknown indication
     Dosage: TWO TO BE TAKEN FOUR TIMES A DAY
     Route: 065
     Dates: start: 20240528, end: 20240529
  4. DOXYCYCLINE [Concomitant]
     Active Substance: DOXYCYCLINE\DOXYCYCLINE HYCLATE
     Indication: Cellulitis
     Dosage: TWO TO BE TAKEN ON THE FIRST DAY THEN ONE TO BE TAKEN EACH DAY
     Route: 065
     Dates: start: 20240509
  5. Spikevax XBB.1.5 [Concomitant]
     Indication: Product used for unknown indication
     Dosage: 0.5 ML (COVID-19 MRNA VACCINE 0.1MG/1ML FOR INJECTION VIALS)
     Route: 030
     Dates: start: 20240528, end: 20240528
  6. BENZALKONIUM CHLORIDE\DIMETHICONE\HYDROCORTISONE\NYSTATIN [Concomitant]
     Active Substance: BENZALKONIUM CHLORIDE\DIMETHICONE\HYDROCORTISONE\NYSTATIN
     Dosage: APPLY BD
     Route: 065
     Dates: start: 20240426
  7. BENZALKONIUM CHLORIDE\DIMETHICONE\HYDROCORTISONE\NYSTATIN [Concomitant]
     Active Substance: BENZALKONIUM CHLORIDE\DIMETHICONE\HYDROCORTISONE\NYSTATIN
     Indication: Rash
     Dosage: 30 G, TID
     Route: 065
     Dates: start: 20240426

REACTIONS (3)
  - Swelling face [Recovered/Resolved]
  - Erythema [Recovered/Resolved]
  - Pruritus [Recovered/Resolved]

NARRATIVE: CASE EVENT DATE: 20240528
